FAERS Safety Report 6681578-4 (Version None)
Quarter: 2010Q2

REPORT INFORMATION
  Report Type: 
  Country: None (occurrence: None)
  Receive Date: 20100413
  Receipt Date: 20100413
  Transmission Date: 20101027
  Serious: Yes (Hospitalization)
  Sender: FDA-Public Use
  Company Number: None

PATIENT
  Sex: Female
  Weight: 55.3 kg

DRUGS (6)
  1. CARBOPLATIN [Suspect]
     Dosage: 1747 MG
  2. CISPLATIN [Suspect]
     Dosage: 120 MG
  3. CYCLOPHOSPHAMIDE [Suspect]
     Dosage: 3260 MG
  4. ISOTRETINOIN [Suspect]
     Dosage: 260 MG
  5. VINCRISTINE SULFATE [Suspect]
     Dosage: 4 MG
  6. DEXAMETHASONE [Concomitant]

REACTIONS (3)
  - COMPARTMENT SYNDROME [None]
  - NECROTISING FASCIITIS [None]
  - PAIN IN EXTREMITY [None]
